FAERS Safety Report 4444997-2 (Version None)
Quarter: 2004Q3

REPORT INFORMATION
  Report Type: 
  Country: None (occurrence: None)
  Receive Date: 20040909
  Receipt Date: 20040813
  Transmission Date: 20050211
  Serious: Yes (Congenital Anomaly, Other)
  Sender: FDA-Public Use
  Company Number: IL-BRISTOL-MYERS SQUIBB COMPANY-12694014

PATIENT
  Sex: Female
  Weight: 3 kg

DRUGS (5)
  1. STAVUDINE [Suspect]
     Indication: HIV INFECTION
     Route: 064
  2. ISONIAZID [Suspect]
     Route: 064
  3. LAMIVUDINE [Suspect]
     Indication: HIV INFECTION
     Route: 064
  4. NEVIRAPINE [Suspect]
     Indication: HIV INFECTION
     Route: 064
  5. ZIDOVUDINE [Concomitant]
     Route: 042

REACTIONS (11)
  - HYDRONEPHROSIS [None]
  - INGUINAL HERNIA [None]
  - KIDNEY ENLARGEMENT [None]
  - NASAL SEPTUM DISORDER [None]
  - PNEUMOTHORAX [None]
  - PREGNANCY [None]
  - RESPIRATORY ACIDOSIS [None]
  - RESPIRATORY FAILURE [None]
  - TOOTH DEVELOPMENT DISORDER [None]
  - URETERIC DILATATION [None]
  - VESICOURETERIC REFLUX [None]
